FAERS Safety Report 6600758-7 (Version None)
Quarter: 2010Q1

REPORT INFORMATION
  Report Type: 
  Country: None (occurrence: None)
  Receive Date: 20100225
  Receipt Date: 20100223
  Transmission Date: 20100710
  Serious: Yes (Death, Hospitalization)
  Sender: FDA-Public Use
  Company Number: US-ASTRAZENECA-2008UW26486

PATIENT
  Age: 33 Year
  Sex: Male
  Weight: 89.8 kg

DRUGS (17)
  1. SEROQUEL [Suspect]
     Indication: DEPRESSION
     Dosage: 25-300 MG
     Route: 048
     Dates: start: 20020601, end: 20030901
  2. SEROQUEL [Suspect]
     Indication: ANXIETY
     Dosage: 25-300 MG
     Route: 048
     Dates: start: 20020601, end: 20030901
  3. SEROQUEL [Suspect]
     Dosage: 100-300 MG
     Route: 048
     Dates: start: 20060701, end: 20070623
  4. SEROQUEL [Suspect]
     Dosage: 100-300 MG
     Route: 048
     Dates: start: 20060701, end: 20070623
  5. ZYPREXA [Concomitant]
     Indication: SLEEP DISORDER
     Route: 048
     Dates: start: 20060101, end: 20070623
  6. DEPAKOTE [Concomitant]
     Indication: BIPOLAR I DISORDER
     Dosage: 500 MG 1 PO TID
     Route: 048
     Dates: start: 20010501, end: 20070623
  7. TRAZODONE [Concomitant]
     Dosage: 100 MG 2 QHS
     Route: 048
     Dates: start: 20010601, end: 20070623
  8. ALPRAZOLAM [Concomitant]
     Dates: start: 20050801, end: 20070623
  9. CLONAZEPAM [Concomitant]
     Indication: ANXIETY
     Dates: start: 20040701, end: 20040801
  10. FLUOXETINE HCL [Concomitant]
     Dates: start: 20040701, end: 20040801
  11. BENZTROPINE MESYLATE [Concomitant]
     Dates: start: 20040801
  12. ZOLOFT [Concomitant]
     Dates: start: 20010501
  13. AMITRIPTYLINE HCL [Concomitant]
     Dates: start: 20011101, end: 20011201
  14. INDERAL LA [Concomitant]
     Dosage: 120- 240 MG 1 PO QID
     Route: 048
     Dates: start: 20051201
  15. BACLOFEN [Concomitant]
     Dosage: 10 MG PO QID PRN
     Dates: start: 20060801
  16. IBUPROFEN [Concomitant]
     Dosage: 600 MG PO QID PRN
     Dates: start: 20060801
  17. NEURONTIN [Concomitant]
     Indication: NERVOUSNESS

REACTIONS (15)
  - ABDOMINAL PAIN UPPER [None]
  - BACK PAIN [None]
  - BLOOD CHOLESTEROL INCREASED [None]
  - BLOOD TRIGLYCERIDES INCREASED [None]
  - CARDIO-RESPIRATORY ARREST [None]
  - DIABETES MELLITUS [None]
  - HYPERGLYCAEMIA [None]
  - MULTIPLE INJURIES [None]
  - NAUSEA [None]
  - OBESITY [None]
  - OVERWEIGHT [None]
  - PAIN [None]
  - PANCREATITIS [None]
  - PANCREATITIS ACUTE [None]
  - WEIGHT INCREASED [None]
